FAERS Safety Report 9232145 (Version 2)
Quarter: 2013Q2

REPORT INFORMATION
  Report Type: Spontaneous
  Country: US (occurrence: US)
  Receive Date: 20130415
  Receipt Date: 20130605
  Transmission Date: 20140414
  Serious: Yes (Other)
  Sender: FDA-Public Use
  Company Number: US-GILEAD-2013-0073390

PATIENT
  Sex: Male

DRUGS (21)
  1. TRUVADA [Suspect]
     Indication: HIV INFECTION
     Dosage: UNK
  2. VIREAD [Suspect]
     Indication: HIV INFECTION
     Dosage: UNK
     Dates: start: 2004
  3. ISENTRESS [Concomitant]
  4. ATAZANAVIR [Concomitant]
  5. CRIXIVAN [Concomitant]
  6. ABACAVIR [Concomitant]
  7. ZERIT [Concomitant]
  8. SAQUINAVIR [Concomitant]
  9. VIRACEPT [Concomitant]
  10. EPIVIR [Concomitant]
  11. ATENOLOL [Concomitant]
     Dosage: 25 MG, QD
     Route: 048
  12. CHLORPROMAZINE [Concomitant]
     Dosage: 100 MG, QID
     Route: 048
  13. EPIPEN [Concomitant]
     Dosage: 1 UNKNOWN, QD
  14. TRICOR                             /00499301/ [Concomitant]
     Dosage: 145 MG, QD
     Route: 048
  15. IMODIUM A-D [Concomitant]
     Dosage: 2 MG, PRN
     Route: 048
  16. ATIVAN [Concomitant]
     Dosage: 0.5 MG, PRN
     Route: 048
  17. MILK OF MAGNESIA [Concomitant]
     Dosage: UNK, PRN
     Route: 048
  18. NITRO-BID [Concomitant]
  19. XYLOCAINE JELLY [Concomitant]
     Dosage: UNK, TID
  20. TYLENOL                            /00020001/ [Concomitant]
     Dosage: 500 MG, UNK
  21. CLOTRIMAZOLE [Concomitant]
     Dosage: 1 %, BID
     Route: 061

REACTIONS (1)
  - Psychotic disorder [Unknown]
